FAERS Safety Report 4371025-X (Version None)
Quarter: 2004Q2

REPORT INFORMATION
  Report Type: 
  Country: None (occurrence: None)
  Receive Date: 20040527
  Receipt Date: 20040520
  Transmission Date: 20050107
  Serious: Yes (Death)
  Sender: FDA-Public Use
  Company Number: 2004-BP-03395RO

PATIENT
  Age: 31 Year
  Sex: Male
  Weight: 133.3 kg

DRUGS (2)
  1. METHADONE HCL [Suspect]
  2. ALPRAZOLAM [Suspect]

REACTIONS (10)
  - ATHEROSCLEROSIS [None]
  - BRAIN OEDEMA [None]
  - CARDIOMEGALY [None]
  - CORONARY ARTERY OCCLUSION [None]
  - DRUG INTERACTION POTENTIATION [None]
  - DRUG TOXICITY [None]
  - FOREIGN BODY ASPIRATION [None]
  - HEPATIC STEATOSIS [None]
  - HEPATOMEGALY [None]
  - VENTRICULAR HYPERTROPHY [None]
